FAERS Safety Report 9780926 (Version 4)
Quarter: 2014Q3

REPORT INFORMATION
  Report Type: Report from Study
  Country: US (occurrence: US)
  Receive Date: 20131224
  Receipt Date: 20140714
  Transmission Date: 20150326
  Serious: Yes (Hospitalization)
  Sender: FDA-Public Use
  Company Number: PHEH2013US025254

PATIENT
  Age: 17 Year
  Sex: Female
  Weight: 37 kg

DRUGS (4)
  1. COLISTIN [Concomitant]
     Active Substance: COLISTIN
     Dosage: 150 MG, BID
  2. TOBI PODHALER [Suspect]
     Active Substance: TOBRAMYCIN
     Indication: CYSTIC FIBROSIS
     Dosage: 112 MG, BID (4 CAPSULES BID)
     Route: 055
     Dates: start: 20130606, end: 20130705
  3. TOBI PODHALER [Suspect]
     Active Substance: TOBRAMYCIN
     Indication: PSEUDOMONAS INFECTION
  4. CAYSTON [Concomitant]
     Active Substance: AZTREONAM
     Dosage: 75 MG, TID
     Route: 055

REACTIONS (6)
  - Respiratory disorder [Unknown]
  - Cystic fibrosis [Unknown]
  - Condition aggravated [Unknown]
  - Device malfunction [Unknown]
  - Pulmonary function test decreased [Unknown]
  - Chest discomfort [Recovered/Resolved]

NARRATIVE: CASE EVENT DATE: 20130724
